FAERS Safety Report 18806479 (Version 1)
Quarter: 2021Q1

REPORT INFORMATION
  Report Type: Spontaneous
  Country: CN (occurrence: CN)
  Receive Date: 20210129
  Receipt Date: 20210129
  Transmission Date: 20210419
  Serious: Yes (Hospitalization)
  Sender: FDA-Public Use
  Company Number: CN-JNJFOC-20210131144

PATIENT
  Age: 25 Year
  Sex: Female

DRUGS (1)
  1. PARACETAMOL [Suspect]
     Active Substance: ACETAMINOPHEN
     Indication: PRODUCT USED FOR UNKNOWN INDICATION
     Dosage: PURPOSEFUL CONSUMPTION OF GREATER THAN 20 TABLETS
     Route: 065

REACTIONS (3)
  - Drug-induced liver injury [Unknown]
  - Intentional overdose [Unknown]
  - Dizziness [Unknown]
